FAERS Safety Report 8857896 (Version 1)
Quarter: 2012Q4

REPORT INFORMATION
  Report Type: 
  Country: US (occurrence: US)
  Receive Date: 20121024
  Receipt Date: 20121024
  Transmission Date: 20130627
  Serious: No
  Sender: FDA-Public Use
  Company Number: US-AMGEN-USASP2012002356

PATIENT
  Sex: Male

DRUGS (14)
  1. ENBREL [Suspect]
     Indication: PRODUCT USED FOR UNKNOWN INDICATION
     Dosage: 50 mg, qwk
     Route: 058
  2. ENBREL [Suspect]
     Dosage: 50 mg, UNK
     Dates: start: 20111101
  3. TEGRETOL XR [Concomitant]
     Indication: GRAND MAL CONVULSION
     Dosage: 100 mg, UNK
  4. ROBAXIN [Concomitant]
     Dosage: 500 mg, UNK
  5. LORAZEPAM [Concomitant]
     Dosage: 0.5 mg, UNK
  6. PROMETHAZINE [Concomitant]
     Dosage: 12.5 mg, UNK
  7. HYDROCODONE/APAP [Concomitant]
  8. NEXIUM [Concomitant]
     Dosage: 20 mg, UNK
  9. PAMELOR [Concomitant]
     Dosage: 10 mg, UNK
  10. MULTIVITAMIN [Concomitant]
  11. FISH OIL [Concomitant]
  12. VITAMIN D [Concomitant]
     Dosage: 1000 IU, UNK
  13. ASA [Concomitant]
     Dosage: 81 mg, UNK
  14. LORTAB [Concomitant]

REACTIONS (3)
  - Epileptic aura [Recovered/Resolved]
  - Micturition urgency [Recovered/Resolved]
  - Vision blurred [Recovered/Resolved]
